FAERS Safety Report 10027669 (Version 1)
Quarter: 2014Q1

REPORT INFORMATION
  Report Type: Spontaneous
  Country: TR (occurrence: TR)
  Receive Date: 20140321
  Receipt Date: 20140321
  Transmission Date: 20141002
  Serious: Yes (Other)
  Sender: FDA-Public Use
  Company Number: PHHY2014TR030133

PATIENT
  Age: 29 Year
  Sex: Female

DRUGS (3)
  1. PAROXETINE [Suspect]
     Indication: PANIC DISORDER
     Dosage: 10 MG, UNK
  2. PAROXETINE [Suspect]
     Indication: MAJOR DEPRESSION
     Dosage: 20 MG, UNK
  3. CITALOPRAM [Suspect]
     Indication: PANIC DISORDER
     Dosage: 40 MG, UNK

REACTIONS (4)
  - Weight increased [Recovered/Resolved]
  - Face oedema [Recovered/Resolved]
  - Oedema peripheral [Recovered/Resolved]
  - Drug effect incomplete [Unknown]
